FAERS Safety Report 9291284 (Version 1)
Quarter: 2013Q2

REPORT INFORMATION
  Report Type: Spontaneous
  Country: GB (occurrence: None)
  Receive Date: 20130513
  Receipt Date: 20130513
  Transmission Date: 20140414
  Serious: Yes (Disabling, Other)
  Sender: FDA-Public Use
  Company Number: 2013P1005385

PATIENT
  Age: 65 Year
  Sex: Female

DRUGS (1)
  1. HEPARIN [Suspect]
     Indication: CEREBRAL ARTERITIS
     Route: 042

REACTIONS (6)
  - Heparin-induced thrombocytopenia [None]
  - Hemiparesis [None]
  - Ischaemic cerebral infarction [None]
  - Carotid artery stenosis [None]
  - Carotid artery dissection [None]
  - Aphasia [None]
